FAERS Safety Report 20348138 (Version 3)
Quarter: 2022Q1

REPORT INFORMATION
  Report Type: Spontaneous
  Country: US (occurrence: US)
  Receive Date: 20220119
  Receipt Date: 20220303
  Transmission Date: 20220423
  Serious: Yes (Other)
  Sender: FDA-Public Use
  Company Number: US-CELLTRION INC.-2022US000387

PATIENT

DRUGS (2)
  1. TRUXIMA [Suspect]
     Active Substance: RITUXIMAB-ABBS
     Indication: Lymphoma
     Dosage: 694 MG ONCE PER WEEK
     Dates: start: 20220104
  2. TRUXIMA [Suspect]
     Active Substance: RITUXIMAB-ABBS
     Dosage: 694 MG ONCE PER WEEK
     Dates: start: 20220111

REACTIONS (11)
  - Dyspnoea [Unknown]
  - Haemoglobin decreased [Unknown]
  - Haematocrit abnormal [Unknown]
  - White blood cell count abnormal [Unknown]
  - Chest discomfort [Unknown]
  - Asthenia [Unknown]
  - Chills [Recovered/Resolved]
  - Nausea [Unknown]
  - Tremor [Unknown]
  - Platelet count decreased [Unknown]
  - Oxygen therapy [Unknown]
